FAERS Safety Report 21651691 (Version 1)
Quarter: 2022Q4

REPORT INFORMATION
  Report Type: Spontaneous
  Country: US (occurrence: None)
  Receive Date: 20221123
  Receipt Date: 20221123
  Transmission Date: 20230112
  Serious: No
  Sender: FDA-Public Use
  Company Number: None

PATIENT
  Age: 72 Year
  Sex: Female
  Weight: 104.51 kg

DRUGS (13)
  1. KISQALI FEMARA CO-PACK [Suspect]
     Active Substance: LETROZOLE\RIBOCICLIB
     Indication: Breast cancer female
     Dosage: FREQUENCY : MONTHLY;  21 OF 28 DAYS?
     Route: 048
     Dates: start: 201912
  2. AMIODARONE [Concomitant]
     Active Substance: AMIODARONE
  3. BACTRIM DS [Concomitant]
     Active Substance: SULFAMETHOXAZOLE\TRIMETHOPRIM
  4. DIPHENHYDRAMINE [Concomitant]
     Active Substance: DIPHENHYDRAMINE
  5. ELIQUIS [Concomitant]
     Active Substance: APIXABAN
  6. FERROUS SULFATE [Concomitant]
     Active Substance: FERROUS SULFATE
  7. FUROSEMIDE [Concomitant]
     Active Substance: FUROSEMIDE
  8. NORCO [Concomitant]
     Active Substance: ACETAMINOPHEN\HYDROCODONE BITARTRATE
  9. LEXAPRO [Concomitant]
     Active Substance: ESCITALOPRAM OXALATE
  10. METOPROLOL [Concomitant]
     Active Substance: METOPROLOL
  11. SOTALOL [Concomitant]
     Active Substance: SOTALOL
  12. TRAMADOL [Concomitant]
     Active Substance: TRAMADOL
  13. TYLENOL [Concomitant]
     Active Substance: ACETAMINOPHEN

REACTIONS (1)
  - Staphylococcal infection [None]
